FAERS Safety Report 7970190-2 (Version None)
Quarter: 2011Q4

REPORT INFORMATION
  Report Type: 
  Country: None (occurrence: None)
  Receive Date: 20111122
  Receipt Date: 20110809
  Transmission Date: 20120403
  Serious: No
  Sender: FDA-Public Use
  Company Number: PHEH2011US01011

PATIENT
  Age: 60 Year
  Sex: Female

DRUGS (3)
  1. GILENYA [Suspect]
     Dosage: 0.5 MG, QD, ORAL
     Route: 048
  2. FISH OIL (FISH OIL) [Concomitant]
  3. CALCIUM CARBONATE [Concomitant]

REACTIONS (2)
  - VISUAL IMPAIRMENT [None]
  - STARING [None]
